FAERS Safety Report 24677965 (Version 4)
Quarter: 2025Q4

REPORT INFORMATION
  Report Type: Report from Study
  Country: TH (occurrence: TH)
  Receive Date: 20241129
  Receipt Date: 20251211
  Transmission Date: 20260117
  Serious: Yes (Hospitalization, Other)
  Sender: TAKEDA
  Company Number: TH-TAKEDA-2024TUS118235

PATIENT
  Age: 36 Year
  Sex: Male

DRUGS (1)
  1. VEDOLIZUMAB [Suspect]
     Active Substance: VEDOLIZUMAB
     Indication: Crohn^s disease
     Dosage: 300 MILLIGRAM

REACTIONS (5)
  - Hypokalaemia [Unknown]
  - Diarrhoea [Unknown]
  - Skin infection [Unknown]
  - Hyponatraemia [Unknown]
  - Rash [Unknown]
